FAERS Safety Report 17902712 (Version 2)
Quarter: 2020Q3

REPORT INFORMATION
  Report Type: Other
  Country: LT (occurrence: LT)
  Receive Date: 20200616
  Receipt Date: 20200708
  Transmission Date: 20201103
  Serious: Yes (Hospitalization)
  Sender: FDA-Public Use
  Company Number: LT-TOPROL ACQUISITION LLC-2020-TOP-000266

PATIENT
  Age: 77 Year
  Sex: Male
  Weight: 50 kg

DRUGS (2)
  1. METOPROLOL SUCCINATE. [Suspect]
     Active Substance: METOPROLOL SUCCINATE
     Indication: INTENTIONAL OVERDOSE
     Dosage: ABOUT 10 TABLETS
     Route: 048
  2. METOPROLOL SUCCINATE. [Suspect]
     Active Substance: METOPROLOL SUCCINATE
     Indication: COMPLETED SUICIDE

REACTIONS (3)
  - Off label use [Recovering/Resolving]
  - Intentional overdose [Recovering/Resolving]
  - Completed suicide [Recovering/Resolving]

NARRATIVE: CASE EVENT DATE: 20200521
